FAERS Safety Report 9513180 (Version 2)
Quarter: 2013Q3

REPORT INFORMATION
  Report Type: Spontaneous
  Country: US (occurrence: US)
  Receive Date: 20130910
  Receipt Date: 20130927
  Transmission Date: 20140515
  Serious: No
  Sender: FDA-Public Use
  Company Number: US-PFIZER INC-2013258878

PATIENT
  Age: 46 Year
  Sex: Female
  Weight: 54.42 kg

DRUGS (2)
  1. LYRICA [Suspect]
     Indication: BONE DISORDER
     Dosage: 150 MG, 2X/DAY
     Route: 048
     Dates: start: 20130923
  2. LYRICA [Suspect]
     Indication: PAIN

REACTIONS (9)
  - Off label use [Unknown]
  - Dyspnoea [Unknown]
  - Heart rate increased [Unknown]
  - Insomnia [Unknown]
  - Nausea [Unknown]
  - Feeling abnormal [Unknown]
  - Gait disturbance [Unknown]
  - Vision blurred [Unknown]
  - Pain [Unknown]
